FAERS Safety Report 22130012 (Version 1)
Quarter: 2023Q1

REPORT INFORMATION
  Report Type: Spontaneous
  Country: US (occurrence: US)
  Receive Date: 20230323
  Receipt Date: 20230323
  Transmission Date: 20230418
  Serious: No
  Sender: FDA-Public Use
  Company Number: US-TAKEDA-2023TUS029158

PATIENT
  Sex: Female
  Weight: 68 kg

DRUGS (1)
  1. TRINTELLIX [Suspect]
     Active Substance: VORTIOXETINE HYDROBROMIDE
     Indication: Major depression
     Dosage: 30 MILLIGRAM
     Route: 065

REACTIONS (2)
  - Off label use [Unknown]
  - Weight decreased [Unknown]
